FAERS Safety Report 5889040-3 (Version None)
Quarter: 2008Q3

REPORT INFORMATION
  Report Type: 
  Country: None (occurrence: None)
  Receive Date: 20080919
  Receipt Date: 20080417
  Transmission Date: 20090109
  Serious: No
  Sender: FDA-Public Use
  Company Number: US-KINGPHARMUSA00001-K200800460

PATIENT

DRUGS (1)
  1. SONATA [Suspect]
     Indication: INSOMNIA
     Dosage: 10 MG, QHS
     Dates: start: 20080412, end: 20080414

REACTIONS (1)
  - DRUG INEFFECTIVE [None]
